FAERS Safety Report 7911952-7 (Version None)
Quarter: 2011Q4

REPORT INFORMATION
  Report Type: 
  Country: None (occurrence: None)
  Receive Date: 20111114
  Receipt Date: 20111102
  Transmission Date: 20120403
  Serious: Yes (Death)
  Sender: FDA-Public Use
  Company Number: US-ROCHE-1011383

PATIENT
  Sex: Female

DRUGS (1)
  1. ACTEMRA [Suspect]
     Indication: PRODUCT USED FOR UNKNOWN INDICATION
     Route: 065

REACTIONS (6)
  - PALLOR [None]
  - PUPIL FIXED [None]
  - DIZZINESS [None]
  - CARDIAC ARREST [None]
  - DYSPNOEA [None]
  - PERIPHERAL COLDNESS [None]
